FAERS Safety Report 12650713 (Version 2)
Quarter: 2019Q3

REPORT INFORMATION
  Report Type: Spontaneous
  Country: US (occurrence: US)
  Receive Date: 20160815
  Receipt Date: 20190724
  Transmission Date: 20191004
  Serious: No
  Sender: FDA-Public Use
  Company Number: US-JAZZ-2016-US-004696

PATIENT
  Sex: Female

DRUGS (12)
  1. XYREM [Suspect]
     Active Substance: SODIUM OXYBATE
     Indication: NARCOLEPSY
     Dosage: 2.25 G, BID
     Route: 048
     Dates: start: 200408, end: 2004
  2. ABREVA [Concomitant]
     Active Substance: DOCOSANOL
  3. TYLENOL EXTRA STRENGTH [Concomitant]
     Active Substance: ACETAMINOPHEN
  4. XYREM [Suspect]
     Active Substance: SODIUM OXYBATE
     Dosage: 3.25 G, BID
     Route: 048
     Dates: start: 201505
  5. TOPIRAMATE. [Concomitant]
     Active Substance: TOPIRAMATE
  6. XYREM [Suspect]
     Active Substance: SODIUM OXYBATE
     Indication: CATAPLEXY
     Dosage: 2.25 G, BID
     Route: 048
     Dates: start: 201210, end: 201310
  7. XYREM [Suspect]
     Active Substance: SODIUM OXYBATE
     Dosage: DOSE ADJUSTMENT
     Route: 048
  8. DIVALPROEX [Suspect]
     Active Substance: DIVALPROEX SODIUM
     Indication: HEADACHE
  9. ESTRADIOL. [Concomitant]
     Active Substance: ESTRADIOL
  10. SIMVASTATIN. [Concomitant]
     Active Substance: SIMVASTATIN
  11. ALBUTEROL SULFATE. [Concomitant]
     Active Substance: ALBUTEROL SULFATE
  12. ACICLOVIR [Concomitant]
     Active Substance: ACYCLOVIR

REACTIONS (2)
  - Headache [Unknown]
  - Fatigue [Unknown]
